FAERS Safety Report 20090714 (Version 1)
Quarter: 2021Q4

REPORT INFORMATION
  Report Type: Spontaneous
  Country: US (occurrence: None)
  Receive Date: 20211119
  Receipt Date: 20211119
  Transmission Date: 20220303
  Serious: Yes (Hospitalization)
  Sender: FDA-Public Use
  Company Number: None

PATIENT
  Age: 14 Year
  Sex: Female
  Weight: 52 kg

DRUGS (15)
  1. METHOTREXATE [Suspect]
     Active Substance: METHOTREXATE
     Dates: end: 20211116
  2. DAUNORUBICIN [Suspect]
     Active Substance: DAUNORUBICIN
     Dates: end: 20211106
  3. PREDNISONE [Suspect]
     Active Substance: PREDNISONE
     Dates: end: 20211111
  4. PREDNISONE [Suspect]
     Active Substance: PREDNISONE
  5. VINCRISTINE SULFATE [Suspect]
     Active Substance: VINCRISTINE SULFATE
     Dates: end: 20211106
  6. IMATINIB [Suspect]
     Active Substance: IMATINIB
     Dates: end: 20211110
  7. CLONAZEPAM [Concomitant]
     Active Substance: CLONAZEPAM
  8. DIMENHYDRINATE [Concomitant]
     Active Substance: DIMENHYDRINATE
  9. FAMOTIDINE [Concomitant]
     Active Substance: FAMOTIDINE
  10. LORAZEPAM [Concomitant]
     Active Substance: LORAZEPAM
  11. MELATONIN [Concomitant]
     Active Substance: MELATONIN
  12. OLANZAPINE [Concomitant]
     Active Substance: OLANZAPINE
  13. PEGALAX [Concomitant]
  14. SODIUM PHOSPHATE [Concomitant]
     Active Substance: SODIUM PHOSPHATE
  15. SENNOSIDES [Concomitant]
     Active Substance: SENNOSIDES

REACTIONS (4)
  - Depressed level of consciousness [None]
  - Cholecystitis acute [None]
  - Septic shock [None]
  - Pseudomonal bacteraemia [None]

NARRATIVE: CASE EVENT DATE: 20211013
